FAERS Safety Report 12633442 (Version 1)
Quarter: 2016Q3

REPORT INFORMATION
  Report Type: Report from Study
  Country: BR (occurrence: BR)
  Receive Date: 20160808
  Receipt Date: 20160808
  Transmission Date: 20161109
  Serious: Yes (Hospitalization, Other)
  Sender: FDA-Public Use
  Company Number: PHHY2015BR109153

PATIENT
  Age: 47 Year
  Sex: Male
  Weight: 66.6 kg

DRUGS (5)
  1. EXJADE [Suspect]
     Active Substance: DEFERASIROX
     Dosage: 1000 MG, UNK
     Route: 065
  2. CIPROFIBRATE [Concomitant]
     Active Substance: CIPROFIBRATE
     Indication: BLOOD TRIGLYCERIDES INCREASED
     Dosage: 1 DF, QD
     Route: 048
     Dates: start: 201403
  3. EXJADE [Suspect]
     Active Substance: DEFERASIROX
     Indication: SICKLE CELL ANAEMIA
     Dosage: 250 MG, UNK
     Route: 048
     Dates: start: 201501
  4. OMEPRAZOLE. [Concomitant]
     Active Substance: OMEPRAZOLE
     Indication: GASTRIC DISORDER
     Dosage: 1 DF, QD
     Route: 048
     Dates: start: 201311
  5. EXJADE [Suspect]
     Active Substance: DEFERASIROX
     Dosage: 1 TABLET OF 500 MG (5 MG/KG) ON ONE DAY AND 2 TABLETS OF 500 MG (15 MG/KG) ON THE OTHER DAY
     Route: 048
     Dates: start: 20150901

REACTIONS (12)
  - Deafness [Not Recovered/Not Resolved]
  - Nervousness [Unknown]
  - Concomitant disease aggravated [Not Recovered/Not Resolved]
  - Paralysis [Unknown]
  - Pigmentation disorder [Unknown]
  - Dry throat [Recovered/Resolved]
  - Anxiety [Unknown]
  - Serum ferritin increased [Recovering/Resolving]
  - Weight decreased [Unknown]
  - Decreased immune responsiveness [Unknown]
  - Bone formation increased [Unknown]
  - Hepatic steatosis [Unknown]

NARRATIVE: CASE EVENT DATE: 201501
